FAERS Safety Report 23567409 (Version 1)
Quarter: 2024Q1

REPORT INFORMATION
  Report Type: Spontaneous
  Country: PL (occurrence: PL)
  Receive Date: 20240226
  Receipt Date: 20240226
  Transmission Date: 20240410
  Serious: Yes (Life-Threatening)
  Sender: FDA-Public Use
  Company Number: PL-POLPHARMA-IMP6000627

PATIENT
  Age: 66 Year
  Sex: Male

DRUGS (5)
  1. HYDROCORTISONE [Suspect]
     Active Substance: HYDROCORTISONE
     Indication: Hypercalcaemia
     Dosage: 100 MG EVERY 6 HOURS
     Route: 042
     Dates: start: 2023
  2. SODIUM CHLORIDE [Suspect]
     Active Substance: SODIUM CHLORIDE
     Indication: Hypercalcaemia
     Dosage: ON THE 10TH DAY OF HOSPITALISATION INTENSIVE FLUID THERAPY WITH 0.9% NACL WAS INITIATED
     Route: 065
     Dates: start: 2023
  3. FUROSEMIDE [Suspect]
     Active Substance: FUROSEMIDE
     Indication: Hypercalcaemia
     Dosage: ON THE 10TH DAY OF HOSPITALISATION FORCED DIURESIS WITH FUROSEMID WAS INITIATED
     Route: 065
     Dates: start: 2023
  4. PAMIDRONATE DISODIUM [Suspect]
     Active Substance: PAMIDRONATE DISODIUM
     Indication: Hypercalcaemia
     Route: 042
     Dates: start: 2023
  5. PAMIDRONATE DISODIUM [Suspect]
     Active Substance: PAMIDRONATE DISODIUM
     Route: 065

REACTIONS (1)
  - Therapy non-responder [Unknown]

NARRATIVE: CASE EVENT DATE: 20230101
